FAERS Safety Report 13163177 (Version 1)
Quarter: 2017Q1

REPORT INFORMATION
  Report Type: Report from Study
  Country: CA (occurrence: CA)
  Receive Date: 20170130
  Receipt Date: 20170130
  Transmission Date: 20170428
  Serious: Yes (Hospitalization)
  Sender: FDA-Public Use
  Company Number: CA-JNJFOC-20170121347

PATIENT
  Age: 64 Year
  Sex: Male
  Weight: 74.39 kg

DRUGS (1)
  1. REMICADE [Suspect]
     Active Substance: INFLIXIMAB
     Indication: CROHN^S DISEASE
     Route: 042
     Dates: start: 20150525

REACTIONS (5)
  - Bladder cancer [Not Recovered/Not Resolved]
  - Blood count abnormal [Unknown]
  - Off label use [Unknown]
  - Product use issue [Unknown]
  - Lumbar vertebral fracture [Unknown]

NARRATIVE: CASE EVENT DATE: 20150525
